FAERS Safety Report 25933639 (Version 1)
Quarter: 2025Q4

REPORT INFORMATION
  Report Type: Spontaneous
  Country: US (occurrence: US)
  Receive Date: 20251017
  Receipt Date: 20251017
  Transmission Date: 20260117
  Serious: No
  Sender: HIKMA
  Company Number: US-HIKMA PHARMACEUTICALS USA INC.-US-H14001-24-11002

PATIENT
  Sex: Female

DRUGS (1)
  1. INFUMORPH [Suspect]
     Active Substance: MORPHINE SULFATE
     Indication: Spinal pain
     Dosage: 1 MILLIGRAM
     Route: 037

REACTIONS (2)
  - Fall [Unknown]
  - Underdose [Unknown]
